FAERS Safety Report 17535776 (Version 1)
Quarter: 2020Q1

REPORT INFORMATION
  Report Type: Spontaneous
  Country: MX (occurrence: MX)
  Receive Date: 20200313
  Receipt Date: 20200313
  Transmission Date: 20200409
  Serious: Yes (Death, Hospitalization, Other)
  Sender: FDA-Public Use
  Company Number: MX-SA-2020SA061728

PATIENT
  Sex: Male

DRUGS (2)
  1. LEMTRADA [Suspect]
     Active Substance: ALEMTUZUMAB
     Dosage: 12 MG
     Route: 041
     Dates: start: 202002, end: 20200223
  2. LEMTRADA [Suspect]
     Active Substance: ALEMTUZUMAB
     Dosage: 12 MG
     Route: 041

REACTIONS (12)
  - Chest pain [Unknown]
  - Leukopenia [Unknown]
  - Gait disturbance [Unknown]
  - Pneumonia [Unknown]
  - Multiple organ dysfunction syndrome [Fatal]
  - Renal failure [Unknown]
  - Immunosuppression [Unknown]
  - Neutropenia [Unknown]
  - Hepatic failure [Unknown]
  - Azotaemia [Unknown]
  - Thrombocytopenia [Unknown]
  - Blood bilirubin increased [Unknown]

NARRATIVE: CASE EVENT DATE: 20200306
